FAERS Safety Report 4851392-0 (Version None)
Quarter: 2005Q4

REPORT INFORMATION
  Report Type: 
  Country: None (occurrence: None)
  Receive Date: 20051208
  Receipt Date: 20051124
  Transmission Date: 20060501
  Serious: Yes (Hospitalization, Other)
  Sender: FDA-Public Use
  Company Number: HQWYE794603FEB04

PATIENT
  Age: 60 Year
  Sex: Female

DRUGS (5)
  1. NEORAL [Suspect]
     Indication: PROPHYLAXIS AGAINST TRANSPLANT REJECTION
     Dosage: 125 MG 1X PER 12 HR
     Route: 048
     Dates: start: 20031127
  2. CELLCEPT [Concomitant]
  3. DELTISONA ^ROUSSEL^  (PREDNISONE) [Concomitant]
  4. OMEPRAZOLE [Concomitant]
  5. ENALAPRIL MALEATE [Concomitant]

REACTIONS (2)
  - BRONCHITIS ACUTE [None]
  - CLEAR CELL CARCINOMA OF THE KIDNEY [None]
